FAERS Safety Report 21746264 (Version 2)
Quarter: 2023Q1

REPORT INFORMATION
  Report Type: Spontaneous
  Country: US (occurrence: US)
  Receive Date: 20221219
  Receipt Date: 20230224
  Transmission Date: 20230418
  Serious: Yes (Other)
  Sender: FDA-Public Use
  Company Number: US-002147023-NVSC2022US292090

PATIENT
  Age: 9 Year

DRUGS (7)
  1. CANAKINUMAB [Suspect]
     Active Substance: CANAKINUMAB
     Indication: Still^s disease
     Route: 065
  2. CANAKINUMAB [Suspect]
     Active Substance: CANAKINUMAB
     Dosage: UNK (INCREASED) DOSE
     Route: 065
  3. METHOTREXATE [Suspect]
     Active Substance: METHOTREXATE
     Indication: Still^s disease
     Dosage: UNK
     Route: 065
  4. CYCLOSPORINE [Suspect]
     Active Substance: CYCLOSPORINE
     Indication: Still^s disease
     Dosage: UNK
     Route: 065
  5. ANAKINRA [Suspect]
     Active Substance: ANAKINRA
     Indication: Still^s disease
     Route: 065
  6. RILONACEPT [Suspect]
     Active Substance: RILONACEPT
     Indication: Still^s disease
     Dosage: UNK
     Route: 065
  7. XELJANZ [Suspect]
     Active Substance: TOFACITINIB CITRATE
     Indication: Still^s disease
     Dosage: UNK
     Route: 065

REACTIONS (4)
  - Interstitial lung disease [Unknown]
  - Condition aggravated [Unknown]
  - Interleukin level increased [Unknown]
  - Product use in unapproved indication [Unknown]
